FAERS Safety Report 5588519-1 (Version None)
Quarter: 2008Q1

REPORT INFORMATION
  Report Type: 
  Country: None (occurrence: None)
  Receive Date: 20080111
  Receipt Date: 20080107
  Transmission Date: 20080703
  Serious: Yes (Life-Threatening)
  Sender: FDA-Public Use
  Company Number: US-ASTRAZENECA-2008AC00041

PATIENT
  Age: 67 Year
  Sex: Male

DRUGS (2)
  1. ATENOLOL [Suspect]
     Route: 048
  2. RISPERIDONE [Suspect]
     Route: 048

REACTIONS (7)
  - HYPOPERFUSION [None]
  - HYPOTENSION [None]
  - OLIGURIA [None]
  - OVERDOSE [None]
  - PLEURAL EFFUSION [None]
  - PULMONARY OEDEMA [None]
  - SINUS BRADYCARDIA [None]
